FAERS Safety Report 5452156-X (Version None)
Quarter: 2007Q3

REPORT INFORMATION
  Report Type: 
  Country: None (occurrence: None)
  Receive Date: 20070914
  Receipt Date: 20070911
  Transmission Date: 20080115
  Serious: Yes (Death)
  Sender: FDA-Public Use
  Company Number: PHEH2007US12182

PATIENT
  Age: 72 Year
  Sex: Male

DRUGS (1)
  1. FORADIL [Suspect]

REACTIONS (1)
  - DEATH [None]
